FAERS Safety Report 17972981 (Version 1)
Quarter: 2020Q3

REPORT INFORMATION
  Report Type: Spontaneous
  Country: US (occurrence: US)
  Receive Date: 20200701
  Receipt Date: 20200701
  Transmission Date: 20201103
  Serious: No
  Sender: FDA-Public Use
  Company Number: None

PATIENT
  Age: 57 Year
  Sex: Female
  Weight: 79.38 kg

DRUGS (19)
  1. AMLODIPINE [Concomitant]
     Active Substance: AMLODIPINE BESYLATE
  2. FUROSEMIDE. [Concomitant]
     Active Substance: FUROSEMIDE
  3. BISACODYL. [Concomitant]
     Active Substance: BISACODYL
  4. GABAPENTIN. [Concomitant]
     Active Substance: GABAPENTIN
  5. PEG 3350 [Concomitant]
     Active Substance: POLYETHYLENE GLYCOL 3350
  6. SENNA [Concomitant]
     Active Substance: SENNA LEAF\SENNOSIDES\SENNOSIDES A AND B
  7. VENTOLIN [Concomitant]
     Active Substance: ALBUTEROL SULFATE
  8. LINZESS [Concomitant]
     Active Substance: LINACLOTIDE
  9. POTASSIUM CL [Concomitant]
     Active Substance: POTASSIUM CHLORIDE
  10. BROVANA [Concomitant]
     Active Substance: ARFORMOTEROL TARTRATE
  11. MS CONTIN [Concomitant]
     Active Substance: MORPHINE SULFATE
  12. OMEPRAZOLE. [Concomitant]
     Active Substance: OMEPRAZOLE
  13. PROCHLORPERAZINE. [Concomitant]
     Active Substance: PROCHLORPERAZINE
  14. METOPROLOL ER [Concomitant]
     Active Substance: METOPROLOL SUCCINATE
  15. PANTOPRAZOLE [Concomitant]
     Active Substance: PANTOPRAZOLE
  16. VITAMIN D3 [Concomitant]
     Active Substance: CHOLECALCIFEROL
  17. OXYCODONE [Concomitant]
     Active Substance: OXYCODONE
  18. VERZENIO [Suspect]
     Active Substance: ABEMACICLIB
     Indication: BREAST CANCER
     Route: 048
     Dates: start: 20200611, end: 20200701
  19. TRAZODONE [Concomitant]
     Active Substance: TRAZODONE HYDROCHLORIDE

REACTIONS (1)
  - Neutropenia [None]
